FAERS Safety Report 6050383-4 (Version None)
Quarter: 2009Q1

REPORT INFORMATION
  Report Type: 
  Country: None (occurrence: None)
  Receive Date: 20090116
  Receipt Date: 20090105
  Transmission Date: 20090719
  Serious: Yes (Hospitalization)
  Sender: FDA-Public Use
  Company Number: KV200801085

PATIENT
  Age: 78 Year
  Sex: Female
  Weight: 89.8 kg

DRUGS (5)
  1. PROPAFENONE HCL [Suspect]
     Indication: HEART RATE IRREGULAR
     Dosage: 225 MG, BID, ORAL
     Route: 048
     Dates: start: 20071117
  2. WARFARIN SODIUM [Concomitant]
  3. DILTIAZEM [Concomitant]
  4. HYDROCHLOROTHIAZIDE [Concomitant]
  5. XALATAN /01297301/ (LATANOPROST) [Concomitant]

REACTIONS (10)
  - ASTHENIA [None]
  - BRADYCARDIA [None]
  - CHEST PAIN [None]
  - CONDITION AGGRAVATED [None]
  - FATIGUE [None]
  - FLATULENCE [None]
  - HYPOTENSION [None]
  - OESOPHAGEAL SPASM [None]
  - PAIN [None]
  - PRODUCT QUALITY ISSUE [None]
